FAERS Safety Report 14836837 (Version 2)
Quarter: 2018Q3

REPORT INFORMATION
  Report Type: Report from Study
  Country: None (occurrence: JP)
  Receive Date: 20180502
  Receipt Date: 20180817
  Transmission Date: 20181010
  Serious: Yes (Death)
  Sender: FDA-Public Use
  Company Number: JP-BAUSCH-BL-2018-012851

PATIENT
  Age: 61 Year
  Sex: Female

DRUGS (7)
  1. PARIET [Concomitant]
     Active Substance: RABEPRAZOLE SODIUM
     Indication: GASTROOESOPHAGEAL REFLUX DISEASE
     Route: 048
     Dates: start: 20170329, end: 20170511
  2. URSO [Concomitant]
     Active Substance: URSODIOL
     Indication: CHOLESTASIS
     Route: 048
     Dates: start: 20170329, end: 20170511
  3. AFINITOR [Concomitant]
     Active Substance: EVEROLIMUS
     Indication: PANCREATIC NEUROENDOCRINE TUMOUR
     Route: 048
     Dates: start: 20170329, end: 20170511
  4. PIARLE [Concomitant]
     Indication: HYPERAMMONAEMIA
     Route: 048
     Dates: start: 20170329, end: 20170525
  5. AMINOLEBAN EN [Concomitant]
     Active Substance: UNSPECIFIED INGREDIENT
     Indication: HYPERAMMONAEMIA
     Route: 048
     Dates: start: 20170428, end: 20170525
  6. RIFXIMA [Suspect]
     Active Substance: RIFAXIMIN
     Indication: HYPERAMMONAEMIA
     Route: 048
     Dates: start: 20170428, end: 20170525
  7. THYRADIN [Concomitant]
     Active Substance: LEVOTHYROXINE
     Indication: HYPOTHYROIDISM
     Route: 048
     Dates: start: 20170329, end: 20170511

REACTIONS (1)
  - Hepatic neoplasm [Fatal]
